FAERS Safety Report 17871123 (Version 2)
Quarter: 2020Q3

REPORT INFORMATION
  Report Type: Spontaneous
  Country: GB (occurrence: GB)
  Receive Date: 20200608
  Receipt Date: 20200710
  Transmission Date: 20201103
  Serious: Yes (Hospitalization)
  Sender: FDA-Public Use
  Company Number: GB-ALNYLAM PHARMACEUTICALS, INC.-ALN-2020-000844

PATIENT

DRUGS (2)
  1. ONPATTRO [Suspect]
     Active Substance: PATISIRAN SODIUM
     Indication: HEREDITARY NEUROPATHIC AMYLOIDOSIS
     Dosage: 19 MILLIGRAM, Q3W
     Route: 042
  2. ONPATTRO [Suspect]
     Active Substance: PATISIRAN SODIUM
     Dosage: 17 MILLIGRAM, Q3W
     Route: 042
     Dates: start: 2020

REACTIONS (4)
  - Weight decreased [Unknown]
  - Hospitalisation [Unknown]
  - Intercepted medication error [Unknown]
  - Dyspnoea [Unknown]
